FAERS Safety Report 6295256-7 (Version None)
Quarter: 2009Q3

REPORT INFORMATION
  Report Type: 
  Country: None (occurrence: None)
  Receive Date: 20090803
  Receipt Date: 20090722
  Transmission Date: 20100115
  Serious: Yes (Other)
  Sender: FDA-Public Use
  Company Number: FR-ELI_LILLY_AND_COMPANY-FR200906001363

PATIENT
  Age: 37 Year
  Sex: Female
  Weight: 49 kg

DRUGS (4)
  1. CYMBALTA [Suspect]
     Indication: DEPRESSION
     Dosage: 60 MG, DAILY (1/D)
     Route: 048
     Dates: start: 20081219, end: 20090418
  2. DOLIPRANE [Concomitant]
     Dosage: UNK, UNKNOWN
     Route: 065
  3. LAMALINE [Concomitant]
     Indication: PAIN
     Dosage: UNK, DAILY (1/D)
     Route: 048
     Dates: start: 20081001, end: 20090401
  4. HOMEOPATIC PREPARATION [Concomitant]
     Dosage: UNK, UNKNOWN
     Route: 065

REACTIONS (5)
  - ABNORMAL BEHAVIOUR [None]
  - AGITATION [None]
  - CONFUSIONAL STATE [None]
  - DELUSION [None]
  - THINKING ABNORMAL [None]
